FAERS Safety Report 14370949 (Version 4)
Quarter: 2019Q3

REPORT INFORMATION
  Report Type: Spontaneous
  Country: CA (occurrence: CA)
  Receive Date: 20180110
  Receipt Date: 20190822
  Transmission Date: 20191004
  Serious: Yes (Other)
  Sender: FDA-Public Use
  Company Number: CA-ROCHE-2051760

PATIENT
  Age: 31 Year
  Sex: Female

DRUGS (3)
  1. XOLAIR [Suspect]
     Active Substance: OMALIZUMAB
     Indication: CHRONIC SPONTANEOUS URTICARIA
     Route: 058
     Dates: start: 20150916
  2. XOLAIR [Suspect]
     Active Substance: OMALIZUMAB
     Route: 058
     Dates: start: 20180102
  3. XOLAIR [Suspect]
     Active Substance: OMALIZUMAB
     Route: 058
     Dates: start: 20190226

REACTIONS (5)
  - Loss of consciousness [Recovered/Resolved]
  - Blood pressure decreased [Unknown]
  - Onychomycosis [Unknown]
  - Syncope [Unknown]
  - Injection site pain [Unknown]

NARRATIVE: CASE EVENT DATE: 20180102
